FAERS Safety Report 9729099 (Version 2)
Quarter: 2013Q4

REPORT INFORMATION
  Report Type: Report from Study
  Country: JP (occurrence: JP)
  Receive Date: 20131204
  Receipt Date: 20131204
  Transmission Date: 20140711
  Serious: Yes (Death, Hospitalization)
  Sender: FDA-Public Use
  Company Number: PHHY2009JP27225

PATIENT
  Age: 8 Year
  Sex: Male
  Weight: 21 kg

DRUGS (16)
  1. ICL670A [Suspect]
     Indication: NEUROBLASTOMA
     Dosage: 125 MG, DAILY
     Route: 048
     Dates: start: 20080819, end: 20090421
  2. ICL670A [Suspect]
     Indication: IRON OVERLOAD
     Dosage: 250 MG, DAILY
     Route: 048
     Dates: start: 20090422, end: 20090505
  3. CARBOPLATIN [Suspect]
     Dosage: UNK UKN, UNK
  4. ETOPOSIDE [Suspect]
     Dosage: UNK UKN, UNK
  5. MELPHALAN [Suspect]
     Dosage: UNK UKN, UNK
  6. URSO [Concomitant]
     Indication: PROPHYLAXIS
     Dosage: 450 MG
     Route: 048
     Dates: start: 20080819, end: 20090226
  7. GLYCYRON [Concomitant]
     Dosage: 3 DF
     Route: 048
     Dates: start: 20080819
  8. GASTER D [Concomitant]
     Dosage: 10 MG
     Route: 048
     Dates: start: 20080819, end: 20080831
  9. PLATELET [Concomitant]
     Dosage: 10 U, EVERY 2 TO 3 WEEKS
     Dates: start: 20090226, end: 20090819
  10. RED BLOOD CELLS, CONCENTRATED [Concomitant]
     Dosage: 2 U, EVERY WEEK
     Dates: start: 20081112
  11. RED BLOOD CELLS, CONCENTRATED [Concomitant]
     Dosage: 2 U, EVERY WEEK
     Dates: start: 20090226, end: 20090819
  12. BLOOD TRANSFUSION, AUXILIARY PRODUCTS [Concomitant]
     Dosage: 38 UNITS
     Dates: end: 20080724
  13. BLOOD TRANSFUSION, AUXILIARY PRODUCTS [Concomitant]
     Dosage: 38 UNITS
     Dates: start: 20080102, end: 20080724
  14. BAKTAR [Concomitant]
     Indication: PROPHYLAXIS
     Dosage: 1 DF
     Route: 048
     Dates: start: 20080827, end: 20100225
  15. ITRIZOLE [Concomitant]
     Indication: PROPHYLAXIS
     Dosage: 50 MG
     Route: 048
     Dates: start: 20080827, end: 20081027
  16. DIFLUCAN [Concomitant]
     Indication: PROPHYLAXIS
     Dosage: 100 MG
     Route: 048
     Dates: start: 20081028, end: 20090514

REACTIONS (7)
  - Neuroblastoma recurrent [Fatal]
  - Serum ferritin increased [Fatal]
  - Pancytopenia [Recovering/Resolving]
  - Gastrointestinal disorder [Recovered/Resolved]
  - Nausea [Recovered/Resolved]
  - Hepatic function abnormal [Recovering/Resolving]
  - Blood bilirubin increased [Recovering/Resolving]
